FAERS Safety Report 22065564 (Version 1)
Quarter: 2023Q1

REPORT INFORMATION
  Report Type: Spontaneous
  Country: US (occurrence: None)
  Receive Date: 20230304
  Receipt Date: 20230304
  Transmission Date: 20230417
  Serious: Yes (Life-Threatening, Hospitalization)
  Sender: FDA-Public Use
  Company Number: None

PATIENT
  Age: 29 Year
  Sex: Female
  Weight: 75 kg

DRUGS (1)
  1. VTAMA [Suspect]
     Active Substance: TAPINAROF
     Indication: Psoriasis
     Dosage: OTHER QUANTITY : 10 SAMPLE MINI TUBES;?FREQUENCY : AT BEDTIME;?
     Route: 062

REACTIONS (6)
  - Headache [None]
  - Dizziness [None]
  - Pharyngeal swelling [None]
  - Swelling face [None]
  - Vomiting [None]
  - Feeding disorder [None]

NARRATIVE: CASE EVENT DATE: 20230303
